FAERS Safety Report 16404649 (Version 1)
Quarter: 2019Q2

REPORT INFORMATION
  Report Type: Spontaneous
  Country: US (occurrence: US)
  Receive Date: 20190607
  Receipt Date: 20190607
  Transmission Date: 20190711
  Serious: No
  Sender: FDA-Public Use
  Company Number: US-BAYER-2019-106653

PATIENT
  Age: 32 Year
  Sex: Female
  Weight: 91 kg

DRUGS (5)
  1. MIDOL COMPLETE [Suspect]
     Active Substance: ACETAMINOPHEN\CAFFEINE\PYRILAMINE MALEATE
     Indication: FATIGUE
     Dosage: 2 DF
     Route: 048
     Dates: start: 20190528, end: 20190530
  2. ALEVE [Suspect]
     Active Substance: NAPROXEN SODIUM
     Dosage: UNK
  3. EXCEDRIN [CAFFEINE;PARACETAMOL] [Concomitant]
     Active Substance: ACETAMINOPHEN\CAFFEINE
     Dosage: UNK
  4. MIDOL COMPLETE [Suspect]
     Active Substance: ACETAMINOPHEN\CAFFEINE\PYRILAMINE MALEATE
     Indication: ABDOMINAL DISTENSION
  5. WALGREENS IRON [Concomitant]
     Dosage: UNK

REACTIONS (1)
  - Metrorrhagia [Recovered/Resolved]
